FAERS Safety Report 7779126-0 (Version None)
Quarter: 2011Q3

REPORT INFORMATION
  Report Type: 
  Country: None (occurrence: None)
  Receive Date: 20110926
  Receipt Date: 20110923
  Transmission Date: 20111222
  Serious: Yes (Hospitalization)
  Sender: FDA-Public Use
  Company Number: PHHO2010US15385

PATIENT
  Sex: Male

DRUGS (15)
  1. CARVEDILOL [Concomitant]
  2. SPIRONOLACTONE [Concomitant]
  3. BLINDED NO TREATMENT RECEIVED [Suspect]
     Indication: DIABETIC RETINAL OEDEMA
     Dosage: ^CODE NOT BROKEN^
     Dates: start: 20081023
  4. BLINDED PLACEBO [Suspect]
     Indication: DIABETIC RETINAL OEDEMA
     Dosage: ^CODE NOT BROKEN^
     Dates: start: 20081023
  5. NITROGLYCERIN [Suspect]
  6. LANTUS [Concomitant]
  7. HYDROCHLOROTHIAZIDE [Concomitant]
  8. FISH OIL [Concomitant]
  9. CHROMIUM CHLORIDE [Concomitant]
  10. ASPIRIN [Concomitant]
  11. COENZYME Q10 [Concomitant]
  12. METFORMIN HCL [Concomitant]
  13. TERAZOSIN HCL [Concomitant]
  14. BLINDED LUCENTIS [Suspect]
     Indication: DIABETIC RETINAL OEDEMA
     Dosage: ^CODE NOT BROKEN^
     Dates: start: 20081023
  15. ENALAPRIL MALEATE [Concomitant]

REACTIONS (8)
  - LOSS OF CONSCIOUSNESS [None]
  - ANGINA PECTORIS [None]
  - CARDIAC ENZYMES INCREASED [None]
  - CHEST PAIN [None]
  - MYOCARDIAL INFARCTION [None]
  - PALLOR [None]
  - SYNCOPE [None]
  - HYPERHIDROSIS [None]
